FAERS Safety Report 7796121-6 (Version None)
Quarter: 2011Q4

REPORT INFORMATION
  Report Type: 
  Country: None (occurrence: None)
  Receive Date: 20111004
  Receipt Date: 20110921
  Transmission Date: 20120403
  Serious: Yes (Other)
  Sender: FDA-Public Use
  Company Number: JP-MYLANLABS-2011S1020233

PATIENT
  Age: 76 Year
  Sex: Male

DRUGS (2)
  1. CISPLATIN [Suspect]
     Indication: METASTASES TO LIVER
     Route: 065
     Dates: start: 20030401, end: 20060701
  2. IRINOTECAN HCL [Suspect]
     Indication: METASTASES TO LIVER
     Route: 065
     Dates: start: 20030401, end: 20060701

REACTIONS (3)
  - MALAISE [None]
  - LEUKOPENIA [None]
  - NEUTROPENIA [None]
